FAERS Safety Report 14778501 (Version 2)
Quarter: 2019Q1

REPORT INFORMATION
  Report Type: Spontaneous
  Country: TR (occurrence: TR)
  Receive Date: 20180419
  Receipt Date: 20190326
  Transmission Date: 20190417
  Serious: Yes (Other)
  Sender: FDA-Public Use
  Company Number: TR-MACLEODS PHARMACEUTICALS US LTD-MAC2018009324

PATIENT

DRUGS (1)
  1. CLOBETASOL 0.05 % W/W [Suspect]
     Active Substance: CLOBETASOL
     Indication: DERMATITIS DIAPER
     Dosage: 0.005 %, TID FIVE TUBES OF CLOBETASOL PROPIONATE (15 G/TUBE), TWO TO THREE TIMES A DAY; FIVE TUBES O
     Route: 061

REACTIONS (8)
  - Central obesity [Recovering/Resolving]
  - Cushing^s syndrome [Recovering/Resolving]
  - Drug ineffective [Recovered/Resolved]
  - Hypertrichosis [Recovering/Resolving]
  - Intentional product misuse [Recovered/Resolved]
  - Cushingoid [Recovering/Resolving]
  - Lipohypertrophy [Recovering/Resolving]
  - Prescription drug used without a prescription [Recovered/Resolved]
